FAERS Safety Report 16688829 (Version 3)
Quarter: 2019Q3

REPORT INFORMATION
  Report Type: Spontaneous
  Country: US (occurrence: US)
  Receive Date: 20190809
  Receipt Date: 20190819
  Transmission Date: 20191004
  Serious: Yes (Death, Other)
  Sender: FDA-Public Use
  Company Number: US-PFIZER INC-2019274509

PATIENT
  Age: 92 Year
  Sex: Male
  Weight: 63 kg

DRUGS (1)
  1. RETACRIT [Suspect]
     Active Substance: EPOETIN ALFA-EPBX
     Indication: ACUTE MYELOID LEUKAEMIA
     Dosage: 40000 IU INJECTED THREE TIMES WEEKLY
     Dates: start: 20190715, end: 20190729

REACTIONS (2)
  - Drug ineffective for unapproved indication [Fatal]
  - Off label use [Fatal]

NARRATIVE: CASE EVENT DATE: 20190715
